FAERS Safety Report 13836582 (Version 1)
Quarter: 2017Q3

REPORT INFORMATION
  Report Type: Spontaneous
  Country: US (occurrence: US)
  Receive Date: 20170804
  Receipt Date: 20170804
  Transmission Date: 20171127
  Serious: No
  Sender: FDA-Public Use
  Company Number: US-ROCHE-1072846

PATIENT
  Age: 52 Year
  Sex: Female

DRUGS (3)
  1. CELEBREX [Concomitant]
     Active Substance: CELECOXIB
  2. GABAPENTIN. [Concomitant]
     Active Substance: GABAPENTIN
  3. BONIVA [Suspect]
     Active Substance: IBANDRONATE SODIUM
     Indication: OSTEOPOROSIS
     Route: 048
     Dates: start: 201201

REACTIONS (2)
  - Dysphagia [Unknown]
  - Gastric disorder [Unknown]
